FAERS Safety Report 7923715-7 (Version None)
Quarter: 2011Q4

REPORT INFORMATION
  Report Type: 
  Country: None (occurrence: None)
  Receive Date: 20111117
  Receipt Date: 20110208
  Transmission Date: 20120403
  Serious: No
  Sender: FDA-Public Use
  Company Number: US-AMGEN-USASP2011007335

PATIENT
  Age: 50 Year
  Sex: Male
  Weight: 76.19 kg

DRUGS (3)
  1. CLOBETASOL PROPIONATE [Concomitant]
  2. DOVONEX [Concomitant]
  3. ENBREL [Suspect]
     Indication: PRODUCT USED FOR UNKNOWN INDICATION
     Dosage: 50 MG, QWK

REACTIONS (1)
  - COUGH [None]
